FAERS Safety Report 9531556 (Version 1)
Quarter: 2013Q3

REPORT INFORMATION
  Report Type: Spontaneous
  Country: US (occurrence: None)
  Receive Date: 20130917
  Receipt Date: 20130917
  Transmission Date: 20140515
  Serious: Yes (Other)
  Sender: FDA-Public Use
  Company Number: None

PATIENT
  Age: 54 Year
  Sex: Female
  Weight: 50 kg

DRUGS (3)
  1. GAMUNEX-C [Suspect]
     Indication: HYPOGAMMAGLOBULINAEMIA
     Route: 042
     Dates: start: 20130709, end: 20130710
  2. GAMUNEX-C [Suspect]
     Indication: PLASMA CELL MYELOMA
     Route: 042
     Dates: start: 20130709, end: 20130710
  3. GAMUNEX-C [Suspect]
     Route: 042
     Dates: start: 20130709, end: 20130710

REACTIONS (1)
  - False positive investigation result [None]
